FAERS Safety Report 22309066 (Version 1)
Quarter: 2023Q2

REPORT INFORMATION
  Report Type: Spontaneous
  Country: CN (occurrence: CN)
  Receive Date: 20230511
  Receipt Date: 20230511
  Transmission Date: 20230722
  Serious: Yes (Hospitalization)
  Sender: FDA-Public Use
  Company Number: CN-PFIZER INC-PV202300081907

PATIENT
  Age: 70 Year
  Sex: Male
  Weight: 65 kg

DRUGS (2)
  1. ZYVOX [Suspect]
     Active Substance: LINEZOLID
     Indication: Biliary tract infection
     Dosage: 0.6 G, 2X/DAY
     Route: 041
     Dates: start: 20230217, end: 20230223
  2. YOU LI WEI [Concomitant]
     Indication: Cerebral infarction
     Dosage: 75 MG, 1X/DAY
     Route: 048
     Dates: start: 20230217, end: 20230223

REACTIONS (2)
  - Platelet count decreased [Recovering/Resolving]
  - Gastrointestinal haemorrhage [Recovering/Resolving]

NARRATIVE: CASE EVENT DATE: 20230223
